FAERS Safety Report 15742053 (Version 1)
Quarter: 2018Q4

REPORT INFORMATION
  Report Type: Spontaneous
  Country: BR (occurrence: BR)
  Receive Date: 20181219
  Receipt Date: 20181219
  Transmission Date: 20190205
  Serious: Yes (Disabling, Other)
  Sender: FDA-Public Use
  Company Number: BR-NOVOPROD-638628

PATIENT
  Age: 62 Year
  Sex: Male
  Weight: 78 kg

DRUGS (2)
  1. GALVUS [Concomitant]
     Active Substance: VILDAGLIPTIN
     Indication: TYPE 2 DIABETES MELLITUS
  2. LEVEMIR [Suspect]
     Active Substance: INSULIN DETEMIR
     Indication: TYPE 2 DIABETES MELLITUS
     Dosage: 40 IU, QD (START DATE: 5 YEARS)
     Route: 065

REACTIONS (2)
  - Extremity necrosis [Not Recovered/Not Resolved]
  - Accident at work [Unknown]

NARRATIVE: CASE EVENT DATE: 201808
